FAERS Safety Report 7783381-0 (Version None)
Quarter: 2011Q3

REPORT INFORMATION
  Report Type: 
  Country: None (occurrence: None)
  Receive Date: 20110926
  Receipt Date: 20110915
  Transmission Date: 20111222
  Serious: Yes (Hospitalization)
  Sender: FDA-Public Use
  Company Number: 2011MA013958

PATIENT
  Age: 23 Year
  Sex: Male

DRUGS (2)
  1. FEVERALL [Suspect]
  2. DENZAPINE (NO PREF. NAME) [Suspect]
     Indication: SCHIZOPHRENIA
     Dates: start: 20070504, end: 20070605

REACTIONS (1)
  - OVERDOSE [None]
